FAERS Safety Report 8768085 (Version 1)
Quarter: 2012Q4

REPORT INFORMATION
  Report Type: 
  Country: CH (occurrence: CH)
  Receive Date: 20120904
  Receipt Date: 20120904
  Transmission Date: 20130627
  Serious: Yes (Other)
  Sender: FDA-Public Use
  Company Number: CH-PFIZER INC-2012213391

PATIENT
  Age: 45 Year
  Sex: Female

DRUGS (2)
  1. ATORVA PFIZER [Suspect]
     Indication: HYPERCHOLESTEROLAEMIA
     Dosage: UNK
     Route: 048
     Dates: start: 201204, end: 201204
  2. TINEAFIN [Suspect]
     Indication: FUNGAL SKIN INFECTION
     Dosage: UNK
     Route: 048
     Dates: start: 201201, end: 201202

REACTIONS (5)
  - Dysgeusia [Recovering/Resolving]
  - Hypogeusia [Recovering/Resolving]
  - Dry mouth [Recovering/Resolving]
  - Paraesthesia mucosal [Recovering/Resolving]
  - Rash [Unknown]
